FAERS Safety Report 5161457-4 (Version None)
Quarter: 2006Q4

REPORT INFORMATION
  Report Type: 
  Country: None (occurrence: None)
  Receive Date: 20061121
  Receipt Date: 20061110
  Transmission Date: 20070319
  Serious: Yes (Hospitalization, Other)
  Sender: FDA-Public Use
  Company Number: 2006141111

PATIENT
  Age: 36 Year
  Sex: Female

DRUGS (11)
  1. SERTRALINE [Suspect]
     Dosage: 125 MG
  2. EPHEDRINE SUL CAP [Suspect]
     Dosage: 150 MG (75 MG, 2 IN 1 D)
  3. MEDROXYPROGESTERONE [Concomitant]
  4. CAFFEINE (CAFFEINE) [Concomitant]
  5. ASPIRIN [Concomitant]
  6. MULTIVITAMIN [Concomitant]
  7. VITAMIN C (VITAMIN C) [Concomitant]
  8. VITAMIN E [Concomitant]
  9. CALCIUM (CALCIUM) [Concomitant]
  10. MAGNESIUM (MAGNESIUM) [Concomitant]
  11. DIPHENHYDRAMINE HCL [Concomitant]

REACTIONS (7)
  - ALANINE AMINOTRANSFERASE INCREASED [None]
  - ASPARTATE AMINOTRANSFERASE INCREASED [None]
  - BLOOD CREATINE PHOSPHOKINASE ABNORMAL [None]
  - DISCOMFORT [None]
  - MUSCLE SPASMS [None]
  - NEUROLOGICAL EXAMINATION ABNORMAL [None]
  - PAIN [None]
